FAERS Safety Report 12177311 (Version 5)
Quarter: 2018Q1

REPORT INFORMATION
  Report Type: Report from Study
  Country: JP (occurrence: JP)
  Receive Date: 20160314
  Receipt Date: 20180127
  Transmission Date: 20180508
  Serious: Yes (Hospitalization, Other)
  Sender: FDA-Public Use
  Company Number: JP-UCBSA-2016008111

PATIENT
  Age: 30 Year
  Sex: Male
  Weight: 33 kg

DRUGS (13)
  1. LEVETIRACETAM. [Suspect]
     Active Substance: LEVETIRACETAM
     Indication: OFF LABEL USE
  2. NOBELBAR [Suspect]
     Active Substance: PHENOBARBITAL SODIUM
     Indication: PARTIAL SEIZURES WITH SECONDARY GENERALISATION
  3. SOLDEM 1 [Concomitant]
     Active Substance: DEXTROSE\SODIUM CHLORIDE\SODIUM LACTATE
     Indication: PRODUCT USED FOR UNKNOWN INDICATION
     Dosage: 500 ML, ONCE DAILY (QD)
     Route: 041
     Dates: start: 20160215, end: 20160217
  4. SOLDEM 3A [Concomitant]
     Active Substance: CARBOHYDRATES\POTASSIUM CHLORIDE\SODIUM CHLORIDE\SODIUM LACTATE
     Indication: PRODUCT USED FOR UNKNOWN INDICATION
     Route: 041
     Dates: start: 20160217, end: 20160219
  5. NOBELBAR [Suspect]
     Active Substance: PHENOBARBITAL SODIUM
     Indication: CLONIC CONVULSION
     Dosage: 250 MG, ONCE DAILY (QD)
     Route: 042
     Dates: start: 20160215, end: 20160215
  6. LAMICTAL [Concomitant]
     Active Substance: LAMOTRIGINE
     Indication: CLONIC CONVULSION
     Dosage: 100 MG DAILY
     Route: 048
  7. SULPERAZON [Concomitant]
     Active Substance: CEFOPERAZONE SODIUM\SULBACTAM SODIUM
     Indication: PRODUCT USED FOR UNKNOWN INDICATION
     Dosage: 1 G, 2X/DAY (BID)
     Route: 042
     Dates: start: 20160215, end: 20160223
  8. NEOPHAGEN [Concomitant]
     Active Substance: GLYCYRRHIZIN
     Indication: HEPATIC FUNCTION ABNORMAL
     Dosage: UNK
     Dates: start: 20160217, end: 20160223
  9. LEVETIRACETAM. [Suspect]
     Active Substance: LEVETIRACETAM
     Indication: CLONIC CONVULSION
     Dosage: 500 MG, ONCE DAILY (QD)
     Route: 041
     Dates: start: 20160217, end: 20160217
  10. LEVETIRACETAM. [Suspect]
     Active Substance: LEVETIRACETAM
     Indication: PARTIAL SEIZURES WITH SECONDARY GENERALISATION
  11. SODIUM VALPROATE [Concomitant]
     Active Substance: VALPROATE SODIUM
     Indication: CLONIC CONVULSION
     Dosage: 800 MG DAILY
     Route: 048
  12. LEVETIRACETAM. [Suspect]
     Active Substance: LEVETIRACETAM
     Indication: EPILEPSY
     Dosage: 500 MG, ONCE DAILY (QD)
     Route: 041
     Dates: start: 20160215, end: 20160215
  13. TATHION [Concomitant]
     Active Substance: GLUTATHIONE
     Indication: HEPATIC FUNCTION ABNORMAL
     Dosage: 200 MG, ONCE DAILY (QD)
     Route: 042
     Dates: start: 20160217, end: 20160223

REACTIONS (9)
  - Hepatic function abnormal [Recovering/Resolving]
  - White blood cell count increased [Unknown]
  - Haemoglobin decreased [Unknown]
  - Haematocrit decreased [Unknown]
  - Blood albumin decreased [Unknown]
  - Depressed level of consciousness [Recovering/Resolving]
  - Lymphocyte count decreased [Unknown]
  - Off label use [Unknown]
  - Blood creatine phosphokinase increased [Recovering/Resolving]

NARRATIVE: CASE EVENT DATE: 20160215
